FAERS Safety Report 16879447 (Version 19)
Quarter: 2020Q2

REPORT INFORMATION
  Report Type: Spontaneous
  Country: US (occurrence: US)
  Receive Date: 20191003
  Receipt Date: 20200624
  Transmission Date: 20200713
  Serious: Yes (Other)
  Sender: FDA-Public Use
  Company Number: US-CELGENEUS-USA-20190909488

PATIENT
  Age: 58 Year
  Sex: Female

DRUGS (7)
  1. ASA [Concomitant]
     Active Substance: ASPIRIN
     Indication: PRODUCT USED FOR UNKNOWN INDICATION
     Route: 065
  2. REVLIMID [Suspect]
     Active Substance: LENALIDOMIDE
     Indication: PLASMA CELL MYELOMA
     Dosage: 25 MILLIGRAM
     Route: 048
     Dates: start: 20170425
  3. LISINOPRIL. [Concomitant]
     Active Substance: LISINOPRIL
     Indication: PRODUCT USED FOR UNKNOWN INDICATION
     Route: 065
  4. REVLIMID [Suspect]
     Active Substance: LENALIDOMIDE
     Dosage: 10 MILLIGRAM
     Route: 048
     Dates: start: 201712
  5. PROBIOTICS [Concomitant]
     Active Substance: PROBIOTICS NOS
     Indication: PRODUCT USED FOR UNKNOWN INDICATION
     Route: 065
  6. OXYCODONE [Concomitant]
     Active Substance: OXYCODONE
     Indication: PRODUCT USED FOR UNKNOWN INDICATION
     Route: 065
  7. VITAMIN B12 [Concomitant]
     Active Substance: CYANOCOBALAMIN
     Indication: PRODUCT USED FOR UNKNOWN INDICATION
     Route: 065

REACTIONS (16)
  - Diarrhoea [Not Recovered/Not Resolved]
  - Back disorder [Unknown]
  - Osteopenia [Unknown]
  - Hypoaesthesia [Not Recovered/Not Resolved]
  - Procedural pain [Unknown]
  - Nail discolouration [Not Recovered/Not Resolved]
  - Nasopharyngitis [Unknown]
  - Skin discolouration [Not Recovered/Not Resolved]
  - Musculoskeletal discomfort [Unknown]
  - Neoplasm malignant [Unknown]
  - Dental caries [Recovered/Resolved]
  - Irritable bowel syndrome [Unknown]
  - Lip discolouration [Not Recovered/Not Resolved]
  - Rash [Unknown]
  - Abdominal discomfort [Unknown]
  - Colitis [Unknown]

NARRATIVE: CASE EVENT DATE: 201909
